FAERS Safety Report 5311478-3 (Version None)
Quarter: 2007Q2

REPORT INFORMATION
  Report Type: 
  Country: None (occurrence: None)
  Receive Date: 20070426
  Receipt Date: 20070426
  Transmission Date: 20071010
  Serious: Yes (Other)
  Sender: FDA-Public Use
  Company Number: None

PATIENT
  Age: 87 Year
  Sex: Male
  Weight: 64.8 kg

DRUGS (20)
  1. VANCOMYCIN [Suspect]
     Indication: PNEUMONIA
     Dosage: 1000MG IV X1 DOSE
     Route: 042
     Dates: start: 20070127
  2. AMIKACIN [Suspect]
     Dosage: 300MG IV X1 DOSE
     Route: 042
     Dates: start: 20070127
  3. MOXIFLOXACIN HCL [Concomitant]
  4. DILTIAZEM [Concomitant]
  5. METAOLAZONE [Concomitant]
  6. BICALUTAMIDE [Concomitant]
  7. DIPHENOXYLATE HCL + ATROPINE SULFATE [Concomitant]
  8. DOCUSATE NA [Concomitant]
  9. FINASTERIDE [Concomitant]
  10. FLUNISOLIDE [Concomitant]
  11. FUROSEMIDE [Concomitant]
  12. LORATADINE [Concomitant]
  13. METOPROLOL SUCCINATE [Concomitant]
  14. POTASSIUM CHLORIDE [Concomitant]
  15. SALSALATE [Concomitant]
  16. SENNOSIDES [Concomitant]
  17. TAMSULOSIN HCL [Concomitant]
  18. TRAMADOL HCL [Concomitant]
  19. TRAZODONE HCL [Concomitant]
  20. WARFARIN [Concomitant]

REACTIONS (14)
  - ANXIETY [None]
  - ATRIAL FIBRILLATION [None]
  - CHILLS [None]
  - CHOKING [None]
  - COUGH [None]
  - CYANOSIS [None]
  - DRUG HYPERSENSITIVITY [None]
  - DYSPHAGIA [None]
  - DYSPNOEA [None]
  - HEART RATE INCREASED [None]
  - OXYGEN SATURATION DECREASED [None]
  - PRODUCTIVE COUGH [None]
  - RESPIRATORY RATE INCREASED [None]
  - SOMNOLENCE [None]
